FAERS Safety Report 17906943 (Version 3)
Quarter: 2020Q3

REPORT INFORMATION
  Report Type: Spontaneous
  Country: US (occurrence: US)
  Receive Date: 20200617
  Receipt Date: 20200921
  Transmission Date: 20201103
  Serious: No
  Sender: FDA-Public Use
  Company Number: US-PFIZER INC-2019278871

PATIENT
  Age: 53 Year

DRUGS (1)
  1. RELPAX [Suspect]
     Active Substance: ELETRIPTAN HYDROBROMIDE
     Indication: MIGRAINE
     Dosage: 40 MG, AS NEEDED, [TAKE 1 TABLET BY MOUTH 1 TIME AS NEEDED,MAY REPEAT IN 2 HOURS IF NECESSARY]
     Route: 048

REACTIONS (1)
  - Drug ineffective [Unknown]
